FAERS Safety Report 5060250-0 (Version None)
Quarter: 2006Q3

REPORT INFORMATION
  Report Type: 
  Country: None (occurrence: None)
  Receive Date: 20060724
  Receipt Date: 20060714
  Transmission Date: 20061208
  Serious: Yes (Other)
  Sender: FDA-Public Use
  Company Number: US-MERCK-0607USA02952

PATIENT
  Age: 51 Year
  Sex: Male

DRUGS (2)
  1. CRIXIVAN [Suspect]
     Route: 048
  2. COMBIVIR [Suspect]
     Indication: HIV INFECTION
     Route: 048

REACTIONS (7)
  - ADVERSE EVENT [None]
  - BLOOD TRIGLYCERIDES INCREASED [None]
  - DIABETES MELLITUS [None]
  - GOUT [None]
  - HYPERTENSION [None]
  - LIPODYSTROPHY ACQUIRED [None]
  - WEIGHT DECREASED [None]
